FAERS Safety Report 7244929-8 (Version None)
Quarter: 2011Q1

REPORT INFORMATION
  Report Type: 
  Country: None (occurrence: None)
  Receive Date: 20110126
  Receipt Date: 20110119
  Transmission Date: 20110831
  Serious: Yes (Disabling, Other)
  Sender: FDA-Public Use
  Company Number: US-ELI_LILLY_AND_COMPANY-US201101004801

PATIENT
  Sex: Female

DRUGS (5)
  1. LABETALOL HCL [Concomitant]
     Dosage: 100 MG, UNK
  2. LOSARTAN/HYDROCHLOORTHIAZIDE [Concomitant]
     Dosage: 25 MG, UNK
  3. HUMALOG [Suspect]
     Indication: TYPE 1 DIABETES MELLITUS
     Dosage: 20 U, 2/D
  4. GABAPENTIN [Concomitant]
     Dosage: 100 MG, UNK
  5. HUMALOG MIX 75/25 [Suspect]
     Indication: TYPE 1 DIABETES MELLITUS
     Dosage: 25 U, 2/D
     Dates: start: 20090101

REACTIONS (5)
  - CEREBROVASCULAR ACCIDENT [None]
  - ASTHENIA [None]
  - MONOPARESIS [None]
  - FURUNCLE [None]
  - NERVOUSNESS [None]
